FAERS Safety Report 8468464-4 (Version None)
Quarter: 2012Q2

REPORT INFORMATION
  Report Type: 
  Country: None (occurrence: None)
  Receive Date: 20120626
  Receipt Date: 20120614
  Transmission Date: 20120825
  Serious: Yes (Other)
  Sender: FDA-Public Use
  Company Number: US-ROCHE-784525

PATIENT
  Sex: Female
  Weight: 97.61 kg

DRUGS (7)
  1. ACCUTANE [Suspect]
     Route: 048
     Dates: start: 19990611, end: 19991101
  2. NOVACET [Concomitant]
  3. ACCUTANE [Suspect]
     Route: 048
     Dates: start: 20020111, end: 20020501
  4. TRIAMCINOLONE [Concomitant]
  5. LIDEX [Concomitant]
  6. ACCUTANE [Suspect]
     Indication: ACNE
     Route: 048
     Dates: start: 19980203, end: 19980601
  7. ACCUTANE [Suspect]
     Route: 048
     Dates: start: 20090601, end: 20091101

REACTIONS (9)
  - COLITIS ULCERATIVE [None]
  - STRESS [None]
  - IRRITABLE BOWEL SYNDROME [None]
  - ECZEMA [None]
  - INFLAMMATORY BOWEL DISEASE [None]
  - LIP DRY [None]
  - RASH [None]
  - DEPRESSION [None]
  - ERYTHEMA [None]
